FAERS Safety Report 6716224-4 (Version None)
Quarter: 2010Q2

REPORT INFORMATION
  Report Type: 
  Country: None (occurrence: None)
  Receive Date: 20100506
  Receipt Date: 20100506
  Transmission Date: 20101027
  Serious: Yes (Hospitalization, Other)
  Sender: FDA-Public Use
  Company Number: None

PATIENT
  Sex: Female
  Weight: 95.2554 kg

DRUGS (19)
  1. OCTAGAM [Suspect]
     Indication: IMMUNODEFICIENCY COMMON VARIABLE
     Dosage: 40 GRAMS GMONTH IV DRIP
     Route: 041
     Dates: start: 20100416, end: 20100416
  2. DIPHENHYDRAMINE [Concomitant]
  3. ACETAMINOPHEN [Concomitant]
  4. POTASSIUM [Concomitant]
  5. FUROSEMIDE [Concomitant]
  6. CALCIUM + VITAMIN D [Concomitant]
  7. MULTIGEN [Concomitant]
  8. NEURONTIN [Concomitant]
  9. AVALIDE [Concomitant]
  10. FOLIC ACID [Concomitant]
  11. SYNTHROID [Concomitant]
  12. ACIPHEX [Concomitant]
  13. PREDNISONE [Concomitant]
  14. PERCOCET [Concomitant]
  15. DULCOLAX [Concomitant]
  16. ALLOPURINOL [Concomitant]
  17. DARVOCET-N 100 [Concomitant]
  18. NIZORAL CREAM [Concomitant]
  19. ALADERM [Concomitant]

REACTIONS (8)
  - CEREBROVASCULAR ACCIDENT [None]
  - CONFUSIONAL STATE [None]
  - HALLUCINATION, VISUAL [None]
  - HEADACHE [None]
  - INFUSION RELATED REACTION [None]
  - RETCHING [None]
  - SLUGGISHNESS [None]
  - URINARY TRACT INFECTION [None]
